APPROVED DRUG PRODUCT: CARDIOQUIN
Active Ingredient: QUINIDINE POLYGALACTURONATE
Strength: 275MG
Dosage Form/Route: TABLET;ORAL
Application: N011642 | Product #002
Applicant: PHARMACEUTICAL RESEARCH ASSOC INC
Approved: Approved Prior to Jan 1, 1982 | RLD: No | RS: No | Type: DISCN